FAERS Safety Report 25809148 (Version 1)
Quarter: 2025Q3

REPORT INFORMATION
  Report Type: Spontaneous
  Country: EU (occurrence: EU)
  Receive Date: 20250916
  Receipt Date: 20250916
  Transmission Date: 20251021
  Serious: Yes (Hospitalization)
  Sender: PURDUE
  Company Number: EU-PURDUE-USA-2025-0320565

PATIENT
  Age: 95 Year
  Sex: Female
  Weight: 59 kg

DRUGS (2)
  1. OXYCODONE HYDROCHLORIDE [Suspect]
     Active Substance: OXYCODONE HYDROCHLORIDE
     Indication: Fracture
     Route: 048
     Dates: start: 20250413, end: 20250418
  2. SKENAN [Suspect]
     Active Substance: MORPHINE SULFATE
     Indication: Fracture
     Dosage: 40 MILLIGRAM, DAILY
     Route: 048
     Dates: start: 20250402, end: 20250413

REACTIONS (1)
  - Ileus paralytic [Recovered/Resolved]

NARRATIVE: CASE EVENT DATE: 20250401
